FAERS Safety Report 24966180 (Version 2)
Quarter: 2025Q1

REPORT INFORMATION
  Report Type: Spontaneous
  Country: US (occurrence: US)
  Receive Date: 20250213
  Receipt Date: 20250304
  Transmission Date: 20250409
  Serious: Yes (Hospitalization)
  Sender: ROCHE
  Company Number: US-ROCHE-10000207597

PATIENT
  Age: 37 Year
  Sex: Male
  Weight: 171.46 kg

DRUGS (2)
  1. HEMLIBRA [Suspect]
     Active Substance: EMICIZUMAB-KXWH
     Indication: Factor VIII deficiency
     Dosage: STRENGTH: 150MG/ML
     Route: 058
     Dates: start: 201207
  2. ADVATE INJECTION [Concomitant]

REACTIONS (4)
  - Weight decreased [Unknown]
  - Blood urine present [Unknown]
  - Off label use [Unknown]
  - Cardiac failure [Unknown]

NARRATIVE: CASE EVENT DATE: 20250117
